FAERS Safety Report 14762946 (Version 1)
Quarter: 2018Q2

REPORT INFORMATION
  Report Type: Spontaneous
  Country: IT (occurrence: IT)
  Receive Date: 20180416
  Receipt Date: 20180416
  Transmission Date: 20180711
  Serious: Yes (Other)
  Sender: FDA-Public Use
  Company Number: IT-SUN PHARMACEUTICAL INDUSTRIES LTD-2018RR-170012

PATIENT
  Age: 63 Year
  Sex: Female

DRUGS (4)
  1. MODURETIC 5 MG + 50 MG COMPRESSE [Concomitant]
     Indication: PRODUCT USED FOR UNKNOWN INDICATION
     Dosage: 1 DF, UNK
     Route: 048
  2. FLUTIFORMO 50 MICROGRAMMI/5 MICROGRAMMI PER EROGAZIONE, SOSPENSIONE PR [Concomitant]
     Indication: PRODUCT USED FOR UNKNOWN INDICATION
     Dosage: 1 DF, UNK
     Route: 055
  3. TIMOPTOL 0,25% COLLIRIO, SOLUZIONE [Concomitant]
     Indication: PRODUCT USED FOR UNKNOWN INDICATION
     Dosage: 1 GTT, UNK
     Route: 057
  4. LORAZEPAM. [Suspect]
     Active Substance: LORAZEPAM
     Indication: INSOMNIA
     Dosage: 2.5 MG, IN TOTAL
     Route: 048
     Dates: start: 20180305, end: 20180305

REACTIONS (1)
  - Psychomotor skills impaired [Recovering/Resolving]

NARRATIVE: CASE EVENT DATE: 20180306
